FAERS Safety Report 8534116-5 (Version None)
Quarter: 2012Q3

REPORT INFORMATION
  Report Type: 
  Country: None (occurrence: None)
  Receive Date: 20120724
  Receipt Date: 20120720
  Transmission Date: 20120928
  Serious: Yes (Death)
  Sender: FDA-Public Use
  Company Number: US-CELGENEUS-163-21880-12072325

PATIENT
  Sex: Male
  Weight: 75.364 kg

DRUGS (4)
  1. REVLIMID [Suspect]
     Indication: MULTIPLE MYELOMA
     Dosage: 15 MILLIGRAM
     Route: 048
     Dates: start: 20120222, end: 20120314
  2. OXYCONTIN [Concomitant]
     Route: 065
  3. COMPAZINE [Concomitant]
     Route: 065
  4. OXYCODONE HCL [Concomitant]
     Route: 065

REACTIONS (1)
  - DEATH [None]
